FAERS Safety Report 6310521-2 (Version None)
Quarter: 2009Q3

REPORT INFORMATION
  Report Type: 
  Country: None (occurrence: None)
  Receive Date: 20090811
  Receipt Date: 20090514
  Transmission Date: 20100115
  Serious: No
  Sender: FDA-Public Use
  Company Number: 1000006246

PATIENT
  Age: 58 Year
  Sex: Female

DRUGS (17)
  1. SAVELLA [Suspect]
     Indication: FIBROMYALGIA
     Dosage: SEE IMAGE
     Route: 048
     Dates: start: 20090508, end: 20090508
  2. SAVELLA [Suspect]
     Indication: FIBROMYALGIA
     Dosage: SEE IMAGE
     Route: 048
     Dates: start: 20090509, end: 20090510
  3. SAVELLA [Suspect]
     Indication: FIBROMYALGIA
     Dosage: SEE IMAGE
     Route: 048
     Dates: start: 20090511
  4. CYMBALTA [Concomitant]
  5. METHADONE [Concomitant]
  6. DOXEPIN HCL [Concomitant]
  7. ADVAIR HFA [Concomitant]
  8. FUROSEMIDE [Concomitant]
  9. POTASSIUM CHLORIDE [Concomitant]
  10. CALCIUM [Concomitant]
  11. CLONIDINE [Concomitant]
  12. MARCAINE [Concomitant]
  13. BACLOFEN [Concomitant]
  14. DILAUDID [Concomitant]
  15. STOOL SOFTENER (NOS) [Concomitant]
  16. STOMACH ACID REDUCER (NOS) [Concomitant]
  17. COUMADIN [Concomitant]

REACTIONS (1)
  - HEADACHE [None]
